FAERS Safety Report 11755529 (Version 1)
Quarter: 2015Q4

REPORT INFORMATION
  Report Type: Spontaneous
  Country: US (occurrence: US)
  Receive Date: 20151119
  Receipt Date: 20151119
  Transmission Date: 20160304
  Serious: No
  Sender: FDA-Public Use
  Company Number: US-PFIZER INC-2015380490

PATIENT
  Age: 63 Year
  Sex: Male
  Weight: 84 kg

DRUGS (1)
  1. IBUPROFEN. [Suspect]
     Active Substance: IBUPROFEN
     Indication: PAIN
     Dosage: PROBABLY TAKING 600-800MG DAILY
     Dates: start: 2012

REACTIONS (3)
  - Eructation [Unknown]
  - Flatulence [Unknown]
  - Epigastric discomfort [Unknown]
